FAERS Safety Report 9530989 (Version 1)
Quarter: 2013Q3

REPORT INFORMATION
  Report Type: Spontaneous
  Country: US (occurrence: None)
  Receive Date: 20130916
  Receipt Date: 20130916
  Transmission Date: 20140515
  Serious: No
  Sender: FDA-Public Use
  Company Number: None

PATIENT
  Sex: Male

DRUGS (2)
  1. AMBIEN [Suspect]
     Indication: SLEEP DISORDER
  2. AMBIEN CR [Suspect]
     Indication: SLEEP DISORDER

REACTIONS (2)
  - Drug ineffective [None]
  - Somnolence [None]
